FAERS Safety Report 10650884 (Version 2)
Quarter: 2016Q1

REPORT INFORMATION
  Report Type: Spontaneous
  Country: US (occurrence: US)
  Receive Date: 20141215
  Receipt Date: 20160307
  Transmission Date: 20160525
  Serious: Yes (Other)
  Sender: FDA-Public Use
  Company Number: US-THROMBOGENICS INC-SPO-2014-1139

PATIENT
  Age: 59 Year
  Sex: Female

DRUGS (1)
  1. JETREA [Suspect]
     Active Substance: OCRIPLASMIN
     Indication: PRODUCT USED FOR UNKNOWN INDICATION
     Dosage: 0.125 MG, ONE TIME DOSE
     Route: 031
     Dates: start: 20140825, end: 20140825

REACTIONS (8)
  - Macular hole [Unknown]
  - Subretinal fluid [Not Recovered/Not Resolved]
  - Visual acuity reduced [Recovering/Resolving]
  - Vision blurred [Unknown]
  - Retinal injury [Not Recovered/Not Resolved]
  - Photopsia [Unknown]
  - Pupillary reflex impaired [Unknown]
  - Disease progression [Unknown]

NARRATIVE: CASE EVENT DATE: 201408
